FAERS Safety Report 7072348-6 (Version None)
Quarter: 2010Q4

REPORT INFORMATION
  Report Type: 
  Country: None (occurrence: None)
  Receive Date: 20101029
  Receipt Date: 20100303
  Transmission Date: 20110411
  Serious: No
  Sender: FDA-Public Use
  Company Number: A0839451A

PATIENT
  Age: 69 Year
  Sex: Female

DRUGS (5)
  1. ADVAIR DISKUS 100/50 [Suspect]
     Indication: ASTHMA
     Route: 055
     Dates: start: 20050101
  2. LISINOPRIL [Concomitant]
  3. STATINS [Concomitant]
  4. PROAIR HFA [Concomitant]
  5. METFORMIN [Concomitant]

REACTIONS (3)
  - DYSPHONIA [None]
  - DYSPNOEA [None]
  - PRODUCT QUALITY ISSUE [None]
